FAERS Safety Report 20839316 (Version 4)
Quarter: 2023Q4

REPORT INFORMATION
  Report Type: Report from Study
  Country: US (occurrence: US)
  Receive Date: 20220517
  Receipt Date: 20231129
  Transmission Date: 20240109
  Serious: No
  Sender: FDA-Public Use
  Company Number: US-KYOWAKIRIN-2022BKK006899

PATIENT

DRUGS (6)
  1. BUROSUMAB [Suspect]
     Active Substance: BUROSUMAB
     Indication: Hereditary hypophosphataemic rickets
     Dosage: UNK UNK, 1X/4 WEEKS
     Route: 065
     Dates: start: 20200311
  2. BUROSUMAB [Suspect]
     Active Substance: BUROSUMAB
     Dosage: 70 MG, 1X/4 WEEKS
     Route: 058
     Dates: start: 202005
  3. BUROSUMAB [Suspect]
     Active Substance: BUROSUMAB
     Indication: Hereditary hypophosphataemic rickets
     Dosage: UNK, 1X/4 WEEKS
     Route: 065
     Dates: start: 20200311
  4. BUROSUMAB [Suspect]
     Active Substance: BUROSUMAB
     Dosage: 70 MG, 1X/4 WEEKS
     Route: 058
     Dates: start: 202005
  5. BUROSUMAB [Suspect]
     Active Substance: BUROSUMAB
     Indication: Hereditary hypophosphataemic rickets
     Dosage: UNK
     Route: 058
     Dates: start: 2018
  6. BUROSUMAB [Suspect]
     Active Substance: BUROSUMAB
     Dosage: UNK, 1X/4 WEEKS
     Route: 065
     Dates: start: 20200311

REACTIONS (7)
  - Blood phosphorus decreased [Unknown]
  - Sleep disorder [Not Recovered/Not Resolved]
  - Fatigue [Unknown]
  - Migraine [Not Recovered/Not Resolved]
  - Restless legs syndrome [Not Recovered/Not Resolved]
  - Injection site bruising [Not Recovered/Not Resolved]
  - Pain [Unknown]

NARRATIVE: CASE EVENT DATE: 20180101
